FAERS Safety Report 8022169-2 (Version None)
Quarter: 2012Q1

REPORT INFORMATION
  Report Type: 
  Country: None (occurrence: None)
  Receive Date: 20120104
  Receipt Date: 20111226
  Transmission Date: 20120608
  Serious: Yes (Hospitalization)
  Sender: FDA-Public Use
  Company Number: JP-PFIZER INC-2011312654

PATIENT
  Age: 35 Year
  Sex: Female

DRUGS (6)
  1. TRICHLORMETHIAZIDE [Suspect]
     Indication: HYPERTENSION
     Route: 048
  2. ALISKIREN FUMARATE [Suspect]
     Indication: HYPERTENSION
     Route: 048
  3. AMLODIPINE [Suspect]
     Indication: HYPERTENSION
     Route: 048
  4. FUROSEMIDE [Suspect]
     Indication: HYPERTENSION
     Route: 048
  5. OLMESARTAN MEDOXOMIL [Suspect]
     Indication: HYPERTENSION
     Route: 048
  6. BETAXOLOL HYDROCHLORIDE [Suspect]
     Indication: HYPERTENSION
     Route: 048

REACTIONS (3)
  - RENAL IMPAIRMENT [None]
  - MALAISE [None]
  - RASH [None]
